FAERS Safety Report 13465948 (Version 1)
Quarter: 2017Q2

REPORT INFORMATION
  Report Type: Spontaneous
  Country: US (occurrence: US)
  Receive Date: 20170420
  Receipt Date: 20170420
  Transmission Date: 20170830
  Serious: Yes (Life-Threatening)
  Sender: FDA-Public Use
  Company Number: None

PATIENT
  Age: 59 Year
  Sex: Female
  Weight: 50.4 kg

DRUGS (10)
  1. VISCUM MALI [Concomitant]
  2. PROGESTERONE CREAM AND CAPSULE [Concomitant]
  3. FISH OIL [Concomitant]
     Active Substance: FISH OIL
  4. VITAMIN C [Concomitant]
     Active Substance: ASCORBIC ACID
  5. VITAMIN B COMPLEX [Concomitant]
     Active Substance: CYANOCOBALAMIN\DEXPANTHENOL\NIACINAMIDE\PYRIDOXINE HYDROCHLORIDE\RIBOFLAVIN 5^-PHOSPHATE SODIUM\THIAMINE HYDROCHLORIDE\VITAMIN B COMPLEX
  6. LEVOFLOXACIN. [Suspect]
     Active Substance: LEVOFLOXACIN
     Indication: SINUSITIS
     Route: 048
     Dates: start: 20170330, end: 20170331
  7. ESTRIOL VAG CREAM [Concomitant]
  8. TURMERIC [Concomitant]
     Active Substance: HERBALS\TURMERIC
  9. VITAMIN D [Concomitant]
     Active Substance: CHOLECALCIFEROL
  10. PROBIOTIC [Concomitant]
     Active Substance: PROBIOTICS NOS

REACTIONS (2)
  - Drug intolerance [None]
  - Clostridium difficile infection [None]

NARRATIVE: CASE EVENT DATE: 20170330
